FAERS Safety Report 14848588 (Version 1)
Quarter: 2018Q2

REPORT INFORMATION
  Report Type: Spontaneous
  Country: FR (occurrence: FR)
  Receive Date: 20180504
  Receipt Date: 20180504
  Transmission Date: 20180711
  Serious: Yes (Other)
  Sender: FDA-Public Use
  Company Number: FR-ASTRAZENECA-2018SE58193

PATIENT
  Sex: Female

DRUGS (1)
  1. XEROQUEL [Suspect]
     Active Substance: QUETIAPINE FUMARATE
     Indication: BIPOLAR DISORDER
     Route: 048

REACTIONS (7)
  - Throat cancer [Unknown]
  - Female reproductive neoplasm [Unknown]
  - Oral fungal infection [Not Recovered/Not Resolved]
  - Off label use [Not Recovered/Not Resolved]
  - Dysphagia [Unknown]
  - Oesophagitis [Unknown]
  - Product use issue [Unknown]
